FAERS Safety Report 7906016-2 (Version None)
Quarter: 2011Q4

REPORT INFORMATION
  Report Type: 
  Country: None (occurrence: None)
  Receive Date: 20111110
  Receipt Date: 20111110
  Transmission Date: 20120403
  Serious: No
  Sender: FDA-Public Use
  Company Number: None

PATIENT
  Sex: Female
  Weight: 60.327 kg

DRUGS (1)
  1. NEURONTIN [Suspect]
     Indication: NEURALGIA
     Dosage: 300 MG
     Route: 048
     Dates: start: 20110716, end: 20110909

REACTIONS (2)
  - TOOTH LOSS [None]
  - PRODUCT QUALITY ISSUE [None]
